FAERS Safety Report 6870012-7 (Version None)
Quarter: 2010Q3

REPORT INFORMATION
  Report Type: 
  Country: None (occurrence: None)
  Receive Date: 20100722
  Receipt Date: 20100712
  Transmission Date: 20110219
  Serious: Yes (Death, Hospitalization)
  Sender: FDA-Public Use
  Company Number: CN-PFIZER INC-2010073122

PATIENT
  Age: 62 Year
  Sex: Male

DRUGS (9)
  1. SUNITINIB MALATE [Suspect]
     Indication: RENAL CELL CARCINOMA
     Dosage: 37.5 MG, 1X/DAY
     Route: 048
     Dates: start: 20091110, end: 20100525
  2. FRUSEMIDE [Concomitant]
     Dosage: UNK
     Dates: start: 20100609, end: 20100706
  3. FRUSEMIDE [Concomitant]
     Dosage: UNK
     Dates: start: 20100608, end: 20100608
  4. DIPROPHYLLINE [Concomitant]
     Dosage: UNK
     Dates: start: 20100611, end: 20100706
  5. DIPROPHYLLINE [Concomitant]
     Dosage: UNK
     Dates: start: 20100601, end: 20100601
  6. ALBUMIN HUMAN [Concomitant]
     Dosage: UNK
     Dates: start: 20100609, end: 20100630
  7. ALBUMIN HUMAN [Concomitant]
     Dosage: UNK
     Dates: start: 20100630, end: 20100706
  8. DEXAMETHASONE [Concomitant]
     Dosage: UNK
     Dates: start: 20100601, end: 20100623
  9. DESLANOSIDE [Concomitant]
     Dosage: UNK
     Dates: start: 20100611, end: 20100705

REACTIONS (1)
  - DYSPNOEA [None]
